FAERS Safety Report 18449707 (Version 1)
Quarter: 2020Q4

REPORT INFORMATION
  Report Type: Spontaneous
  Country: US (occurrence: US)
  Receive Date: 20201031
  Receipt Date: 20201031
  Transmission Date: 20210114
  Serious: Yes (Death, Other)
  Sender: FDA-Public Use
  Company Number: US-NAPPMUNDI-USA-2020-0152471

PATIENT
  Age: 29 Year
  Sex: Male

DRUGS (3)
  1. OXYCONTIN [Suspect]
     Active Substance: OXYCODONE HYDROCHLORIDE
     Dosage: 80 MG, 6 PER DAY
     Route: 048
     Dates: start: 20100310, end: 20180407
  2. OXYCONTIN [Suspect]
     Active Substance: OXYCODONE HYDROCHLORIDE
     Indication: PRODUCT USED FOR UNKNOWN INDICATION
     Dosage: 40 MG, 6 PER DAY
     Route: 048
     Dates: start: 20100310, end: 20180407
  3. OXYCODONE HYDROCHLORIDE (SIMILAR TO NDA 22-272) [Suspect]
     Active Substance: OXYCODONE HYDROCHLORIDE
     Indication: PRODUCT USED FOR UNKNOWN INDICATION
     Dosage: 30 MG, 6 TO 10 TABLETS PER DAY
     Route: 048
     Dates: start: 201003, end: 20180407

REACTIONS (2)
  - Overdose [Fatal]
  - Drug dependence [Unknown]

NARRATIVE: CASE EVENT DATE: 20100310
